FAERS Safety Report 18721722 (Version 2)
Quarter: 2021Q1

REPORT INFORMATION
  Report Type: Spontaneous
  Country: US (occurrence: US)
  Receive Date: 20210110
  Receipt Date: 20210205
  Transmission Date: 20210419
  Serious: Yes (Other)
  Sender: FDA-Public Use
  Company Number: US-TEVA-2020-US-1865135

PATIENT
  Age: 76 Year
  Sex: Female

DRUGS (1)
  1. METHOTREXATE. [Suspect]
     Active Substance: METHOTREXATE
     Indication: ARTHRITIS
     Dosage: 10 MILLIGRAM DAILY; PATIENT REPORTED TAKING 10 MG DAILY INSTEAD OF WEEKLY
     Route: 065

REACTIONS (9)
  - Hypoalbuminaemia [Unknown]
  - Skin ulcer [Recovering/Resolving]
  - Inappropriate schedule of product administration [Unknown]
  - Mouth haemorrhage [Recovered/Resolved]
  - Pancytopenia [Recovered/Resolved]
  - Acute kidney injury [Unknown]
  - Dysphagia [Unknown]
  - Toxicity to various agents [Recovering/Resolving]
  - Oral mucosa erosion [Recovered/Resolved]
